FAERS Safety Report 8623973-X (Version None)
Quarter: 2012Q3

REPORT INFORMATION
  Report Type: 
  Country: None (occurrence: None)
  Receive Date: 20120827
  Receipt Date: 20120816
  Transmission Date: 20120928
  Serious: Yes (Hospitalization)
  Sender: FDA-Public Use
  Company Number: US-ASTRAZENECA-2012SE58095

PATIENT
  Age: 34 Year
  Sex: Female

DRUGS (2)
  1. HYDROCHLOROTHIAZIDE [Concomitant]
     Indication: HYPERTENSION
  2. LISINOPRIL [Suspect]
     Indication: BLOOD PRESSURE INCREASED

REACTIONS (2)
  - GASTROINTESTINAL OEDEMA [None]
  - ACUTE ABDOMEN [None]
